FAERS Safety Report 24720340 (Version 2)
Quarter: 2024Q4

REPORT INFORMATION
  Report Type: Spontaneous
  Country: TR (occurrence: TR)
  Receive Date: 20241211
  Receipt Date: 20241223
  Transmission Date: 20250115
  Serious: Yes (Other)
  Sender: CELLTRION
  Company Number: TR-CELLTRION INC.-2024TR031418

PATIENT

DRUGS (5)
  1. INFLIXIMAB [Suspect]
     Active Substance: INFLIXIMAB
     Indication: Crohn^s disease
     Dosage: 120 MILLIGRAM PER MILLILITRE, EVERY 2 WEEKS
     Route: 058
     Dates: start: 20240116, end: 20241204
  2. INFLIXIMAB [Suspect]
     Active Substance: INFLIXIMAB
     Dosage: 120 MILLIGRAM EVERY 2 WEEKS
     Route: 058
     Dates: start: 20241119
  3. INFLIXIMAB [Suspect]
     Active Substance: INFLIXIMAB
     Indication: Crohn^s disease
     Dosage: 5 MG/KG AT WEEK 0 AND 2
     Route: 042
  4. IMURAN [Concomitant]
     Active Substance: AZATHIOPRINE
     Indication: Crohn^s disease
     Dosage: 50 MG 1X1
     Route: 048
     Dates: start: 2008
  5. PENTASA [Concomitant]
     Active Substance: MESALAMINE
     Indication: Crohn^s disease
     Dosage: 2 DF, BID/2X2
     Route: 048
     Dates: start: 2008

REACTIONS (3)
  - Crohn^s disease [Unknown]
  - Arthralgia [Unknown]
  - Loss of therapeutic response [Unknown]

NARRATIVE: CASE EVENT DATE: 20241119
